FAERS Safety Report 9366297 (Version 1)
Quarter: 2013Q2

REPORT INFORMATION
  Report Type: Spontaneous
  Country: US (occurrence: US)
  Receive Date: 20130625
  Receipt Date: 20130625
  Transmission Date: 20140414
  Serious: No
  Sender: FDA-Public Use
  Company Number: US-GLAXOSMITHKLINE-A0988334A

PATIENT
  Sex: Female

DRUGS (1)
  1. VERAMYST [Suspect]
     Indication: RESPIRATORY TRACT INFECTION
     Route: 045
     Dates: start: 201207, end: 201207

REACTIONS (1)
  - Drug ineffective [Unknown]
